FAERS Safety Report 8215119-7 (Version None)
Quarter: 2012Q1

REPORT INFORMATION
  Report Type: 
  Country: None (occurrence: None)
  Receive Date: 20120316
  Receipt Date: 20120313
  Transmission Date: 20120608
  Serious: Yes (Other)
  Sender: FDA-Public Use
  Company Number: JP-PFIZER INC-2012066484

PATIENT
  Age: 41 Year
  Sex: Female

DRUGS (2)
  1. CORTRIL [Suspect]
     Dosage: 40 MG, UNK
     Route: 048
  2. CORTRIL [Suspect]
     Dosage: 50 MG, UNK
     Route: 048

REACTIONS (11)
  - MENTAL DISORDER [None]
  - MUSCLE SPASTICITY [None]
  - ABDOMINAL PAIN [None]
  - CONSTIPATION [None]
  - WEIGHT INCREASED [None]
  - BLOOD ALBUMIN DECREASED [None]
  - HYPOGLYCAEMIA [None]
  - NAUSEA [None]
  - OEDEMA PERIPHERAL [None]
  - BLOOD CORTISOL DECREASED [None]
  - LOCALISED OEDEMA [None]
